FAERS Safety Report 24969464 (Version 1)
Quarter: 2025Q1

REPORT INFORMATION
  Report Type: Spontaneous
  Country: US (occurrence: US)
  Receive Date: 20250214
  Receipt Date: 20250214
  Transmission Date: 20250409
  Serious: Yes (Life-Threatening, Hospitalization, Other)
  Sender: GLAXOSMITHKLINE
  Company Number: US-GSK-US2025GSK017973

PATIENT

DRUGS (1)
  1. BUPROPION [Suspect]
     Active Substance: BUPROPION
     Indication: Product used for unknown indication

REACTIONS (9)
  - Toxic epidermal necrolysis [Recovering/Resolving]
  - Upper airway obstruction [Recovering/Resolving]
  - Septic shock [Recovering/Resolving]
  - Circulatory collapse [Recovering/Resolving]
  - Hypoxia [Recovering/Resolving]
  - Respiratory tract oedema [Recovering/Resolving]
  - Cardiac failure [Recovering/Resolving]
  - Haemodynamic instability [Recovering/Resolving]
  - Respiratory failure [Recovering/Resolving]
